FAERS Safety Report 6043062-0 (Version None)
Quarter: 2009Q1

REPORT INFORMATION
  Report Type: 
  Country: None (occurrence: None)
  Receive Date: 20090119
  Receipt Date: 20090113
  Transmission Date: 20090719
  Serious: Yes (Other)
  Sender: FDA-Public Use
  Company Number: FR-ABBOTT-08P-056-0490868-00

PATIENT
  Sex: Female

DRUGS (3)
  1. DEPAKOTE [Suspect]
     Indication: BIPOLAR DISORDER
     Route: 048
     Dates: start: 20080910, end: 20081006
  2. AERIUS [Concomitant]
     Indication: ALLERGIC COUGH
     Route: 048
     Dates: start: 20081001
  3. ZOLPIDEM [Concomitant]
     Indication: SLEEP DISORDER
     Route: 048
     Dates: start: 20080701, end: 20081101

REACTIONS (2)
  - DEAFNESS [None]
  - HYPOACUSIS [None]
